FAERS Safety Report 25224924 (Version 4)
Quarter: 2025Q3

REPORT INFORMATION
  Report Type: Spontaneous
  Country: CA (occurrence: CA)
  Receive Date: 20250422
  Receipt Date: 20250917
  Transmission Date: 20251021
  Serious: Yes (Death, Other)
  Sender: PFIZER
  Company Number: CA-PFIZER INC-202400286438

PATIENT
  Age: 63 Year
  Sex: Female

DRUGS (2)
  1. ABRILADA [Suspect]
     Active Substance: ADALIMUMAB-AFZB
     Indication: Crohn^s disease
     Route: 058
     Dates: start: 20221114, end: 2024
  2. PREDNISONE [Concomitant]
     Active Substance: PREDNISONE
     Dates: start: 20221005

REACTIONS (6)
  - Death [Fatal]
  - Cardiac failure chronic [Not Recovered/Not Resolved]
  - Lung cancer metastatic [Unknown]
  - Stress cardiomyopathy [Not Recovered/Not Resolved]
  - Dyspnoea [Not Recovered/Not Resolved]
  - Lung disorder [Not Recovered/Not Resolved]

NARRATIVE: CASE EVENT DATE: 20250101
